FAERS Safety Report 19943245 (Version 1)
Quarter: 2021Q4

REPORT INFORMATION
  Report Type: Report from Study
  Country: FR (occurrence: FR)
  Receive Date: 20211012
  Receipt Date: 20211012
  Transmission Date: 20220304
  Serious: Yes (Hospitalization)
  Sender: FDA-Public Use
  Company Number: FR-GLAXOSMITHKLINE-FR2021GSK205899

PATIENT
  Age: 74 Year
  Sex: Female
  Weight: 43.5 kg

DRUGS (11)
  1. NIRAPARIB [Suspect]
     Active Substance: NIRAPARIB
     Indication: Ovarian cancer
     Dosage: 100 MG
     Dates: end: 20210912
  2. PLACEBO [Suspect]
     Active Substance: UNSPECIFIED INGREDIENT
     Indication: Ovarian cancer
     Dosage: 500 MG
     Dates: start: 20201125, end: 20201125
  3. PLACEBO [Suspect]
     Active Substance: UNSPECIFIED INGREDIENT
     Dosage: 1000 MG
     Dates: start: 20210903, end: 20210903
  4. CARBOPLATIN [Suspect]
     Active Substance: CARBOPLATIN
     Indication: Ovarian cancer
     Dosage: 5 AUC
     Route: 042
     Dates: start: 20201104, end: 20201104
  5. PACLITAXEL [Suspect]
     Active Substance: PACLITAXEL
     Indication: Ovarian cancer
     Dosage: 224 MG
     Route: 042
     Dates: start: 20201104, end: 20201104
  6. BEVACIZUMAB [Suspect]
     Active Substance: BEVACIZUMAB
     Indication: Ovarian cancer
     Dosage: UNK
     Route: 042
  7. BEVACIZUMAB [Suspect]
     Active Substance: BEVACIZUMAB
     Dosage: 630 MG/KG
     Route: 042
     Dates: start: 20210903, end: 20210903
  8. CISPLATIN [Concomitant]
     Active Substance: CISPLATIN
     Dosage: UNK
  9. DOCETAXEL [Concomitant]
     Active Substance: DOCETAXEL
     Dosage: UNK
  10. LEVOTHYROXINE [Concomitant]
     Active Substance: LEVOTHYROXINE
     Indication: Hypothyroidism
     Dosage: 75 UG, QD
     Route: 048
     Dates: start: 20210602
  11. PRIMPERAN [Concomitant]
     Active Substance: METOCLOPRAMIDE HYDROCHLORIDE
     Indication: Nausea
     Dosage: 10 MG, PRN
     Route: 048
     Dates: start: 20210602, end: 20210611

REACTIONS (2)
  - Decreased appetite [Not Recovered/Not Resolved]
  - Condition aggravated [Not Recovered/Not Resolved]

NARRATIVE: CASE EVENT DATE: 20210702
